FAERS Safety Report 10005076 (Version 1)
Quarter: 2014Q1

REPORT INFORMATION
  Report Type: Spontaneous
  Country: JP (occurrence: JP)
  Receive Date: 20140312
  Receipt Date: 20140312
  Transmission Date: 20141002
  Serious: Yes (Disabling)
  Sender: FDA-Public Use
  Company Number: JP-ALLERGAN-1404704US

PATIENT
  Age: 72 Year
  Sex: Male

DRUGS (4)
  1. ALPHAGAN [Suspect]
     Indication: GLAUCOMA
     Dosage: 1 DROP IN EACH EYE, TWICE A DAY
     Route: 047
     Dates: start: 20130509, end: 20131007
  2. COSOPT [Suspect]
     Indication: GLAUCOMA
     Dosage: 1 DROP IN EACH EYE, TWICE A DAY
     Route: 047
     Dates: start: 20120628, end: 20131009
  3. TRAVATANZ [Concomitant]
     Dosage: UNK
     Dates: start: 20130207, end: 20131009
  4. SANCOBA [Concomitant]
     Dosage: UNK
     Dates: start: 20130307, end: 20131010

REACTIONS (1)
  - Atrial fibrillation [Recovered/Resolved]
